FAERS Safety Report 5094283-5 (Version None)
Quarter: 2006Q3

REPORT INFORMATION
  Report Type: 
  Country: None (occurrence: None)
  Receive Date: 20060831
  Receipt Date: 20060829
  Transmission Date: 20061208
  Serious: Yes (Other)
  Sender: FDA-Public Use
  Company Number: 200614379EU

PATIENT
  Age: 51 Year
  Sex: Female

DRUGS (6)
  1. NICORETTE [Suspect]
     Indication: SMOKING CESSATION THERAPY
     Dosage: 1UNIT THREE TIMES PER DAY
     Route: 002
  2. NICORETTE [Suspect]
     Indication: SMOKING CESSATION THERAPY
     Route: 055
     Dates: start: 20060807
  3. CALCIUM GLUCONATE [Concomitant]
     Indication: OSTEOPOROSIS
  4. FLUPHENAZINE DECANOATE [Concomitant]
     Indication: NERVOUS SYSTEM DISORDER
     Dosage: 25MG MONTHLY
  5. FLUOXETINE HYDROCHLORIDE [Concomitant]
     Indication: DEPRESSION
  6. QUETIAPINE FUMARATE [Concomitant]
     Indication: NERVOUS SYSTEM DISORDER
     Route: 048

REACTIONS (4)
  - DEPENDENCE [None]
  - DRUG DEPENDENCE [None]
  - DRUG INEFFECTIVE [None]
  - OVERDOSE [None]
